FAERS Safety Report 18218840 (Version 1)
Quarter: 2020Q3

REPORT INFORMATION
  Report Type: Spontaneous
  Country: US (occurrence: US)
  Receive Date: 20200901
  Receipt Date: 20200901
  Transmission Date: 20201103
  Serious: Yes (Other)
  Sender: FDA-Public Use
  Company Number: US-CELGENEUS-USA-20200805934

PATIENT
  Sex: Male

DRUGS (1)
  1. THALOMID [Suspect]
     Active Substance: THALIDOMIDE
     Indication: PLASMA CELL MYELOMA
     Route: 048

REACTIONS (7)
  - Amnesia [Unknown]
  - Nausea [Unknown]
  - Feeling abnormal [Unknown]
  - Laboratory test abnormal [Unknown]
  - Dizziness [Unknown]
  - Drug ineffective [Unknown]
  - Neuropathy peripheral [Unknown]
